FAERS Safety Report 10647857 (Version 1)
Quarter: 2014Q4

REPORT INFORMATION
  Report Type: Spontaneous
  Country: US (occurrence: US)
  Receive Date: 20141212
  Receipt Date: 20141212
  Transmission Date: 20150529
  Serious: Yes (Death)
  Sender: FDA-Public Use
  Company Number: US-CIPLA LTD.-2014US02335

PATIENT

DRUGS (6)
  1. LOPINAVIR/RITONAVIR [Suspect]
     Active Substance: LOPINAVIR\RITONAVIR
     Dosage: 200 MG/50 MG, THREE TABLETS TWICE DAILY FROM 30 WEEKS GESTATION UNTIL DELIVERY
  2. LOPINAVIR/RITONAVIR [Suspect]
     Active Substance: LOPINAVIR\RITONAVIR
     Dosage: 200 MG/50 MG, TWO TABLETS TWICE DAILY
  3. LONG-LASTING INSECTICIDE [Concomitant]
  4. LOPINAVIR/RITONAVIR [Suspect]
     Active Substance: LOPINAVIR\RITONAVIR
     Indication: HIV INFECTION
     Dosage: 200 MG/50 MG, TWO TABLETS TWICE DAILY
  5. LAMIVUDINE/ZIDOVUDINE [Suspect]
     Active Substance: LAMIVUDINE\ZIDOVUDINE
     Indication: HIV INFECTION
     Dosage: 150 MG/300 MG TWICE DAILY.
  6. TRIMETHOPRIM ?SULFAMETHOXAZOLE [Concomitant]
     Indication: PROPHYLAXIS

REACTIONS (1)
  - Road traffic accident [Fatal]
